FAERS Safety Report 6978489-3 (Version None)
Quarter: 2010Q3

REPORT INFORMATION
  Report Type: 
  Country: None (occurrence: None)
  Receive Date: 20100913
  Receipt Date: 20100902
  Transmission Date: 20110219
  Serious: Yes (Other)
  Sender: FDA-Public Use
  Company Number: US-BAYER-201032598NA

PATIENT
  Age: 47 Year
  Sex: Female

DRUGS (6)
  1. BETASERON [Suspect]
     Indication: RELAPSING-REMITTING MULTIPLE SCLEROSIS
     Dosage: TOTAL DAILY DOSE: 2 MIU
     Route: 058
     Dates: start: 20100819
  2. BETASERON [Suspect]
     Route: 058
     Dates: start: 20060119, end: 20070601
  3. BETASERON [Suspect]
     Route: 058
     Dates: start: 20060102
  4. BETASERON [Suspect]
     Route: 058
     Dates: end: 20100104
  5. VALIUM [Concomitant]
     Dosage: UNIT DOSE: 2.5 MG
  6. MARINOL [Concomitant]

REACTIONS (2)
  - FEELING JITTERY [None]
  - MANIA [None]
